FAERS Safety Report 9908593 (Version 1)
Quarter: 2014Q1

REPORT INFORMATION
  Report Type: Spontaneous
  Country: US (occurrence: None)
  Receive Date: 20140211
  Receipt Date: 20140211
  Transmission Date: 20141002
  Serious: No
  Sender: FDA-Public Use
  Company Number: 2014P1000875

PATIENT
  Age: 50 Year
  Sex: 0

DRUGS (3)
  1. MITOMYCIN [Suspect]
     Indication: BLADDER CANCER
     Route: 043
  2. ANTIBIOTICS [Concomitant]
  3. ACETAMINOPHEN [Concomitant]

REACTIONS (2)
  - Cystitis [None]
  - Post procedural complication [None]
